FAERS Safety Report 7462405-4 (Version None)
Quarter: 2011Q2

REPORT INFORMATION
  Report Type: 
  Country: None (occurrence: None)
  Receive Date: 20110506
  Receipt Date: 20110503
  Transmission Date: 20111010
  Serious: Yes (Hospitalization)
  Sender: FDA-Public Use
  Company Number: US-BRISTOL-MYERS SQUIBB COMPANY-15713985

PATIENT
  Age: 58 Year
  Sex: Male

DRUGS (10)
  1. OMEPRAZOLE [Concomitant]
     Route: 048
  2. ZOFRAN [Concomitant]
     Dosage: EVERY 6 HRS
  3. LEVOTHYROXINE SODIUM [Concomitant]
  4. IPILIMUMAB [Suspect]
     Indication: MALIGNANT MELANOMA
     Route: 042
     Dates: start: 20110419
  5. DIOVAN [Concomitant]
     Route: 048
  6. ASPIRIN [Concomitant]
     Route: 048
  7. IBUPROFEN [Concomitant]
     Dosage: 4 TABS,Q8H
     Route: 048
  8. COREG [Concomitant]
     Dosage: 1/2 TAP PO EVERY MORNING
     Route: 048
  9. FISH OIL [Concomitant]
  10. MULTI-VITAMIN [Concomitant]

REACTIONS (1)
  - SYNCOPE [None]
